FAERS Safety Report 6714215-0 (Version None)
Quarter: 2010Q2

REPORT INFORMATION
  Report Type: 
  Country: None (occurrence: None)
  Receive Date: 20100506
  Receipt Date: 20100416
  Transmission Date: 20101027
  Serious: Yes (Other)
  Sender: FDA-Public Use
  Company Number: PHHY2010US25779

PATIENT
  Sex: Female
  Weight: 70 kg

DRUGS (1)
  1. SANDOSTATIN LAR [Suspect]
     Dosage: 30 MG MONTHLY

REACTIONS (5)
  - BLOOD GLUCOSE INCREASED [None]
  - DERMATITIS ACNEIFORM [None]
  - DIARRHOEA [None]
  - ERYTHEMA [None]
  - RASH [None]
